FAERS Safety Report 17625346 (Version 2)
Quarter: 2020Q2

REPORT INFORMATION
  Report Type: Spontaneous
  Country: US (occurrence: US)
  Receive Date: 20200403
  Receipt Date: 20200421
  Transmission Date: 20200713
  Serious: Yes (Hospitalization, Other)
  Sender: FDA-Public Use
  Company Number: US-INCYTE CORPORATION-2020IN003047

PATIENT

DRUGS (25)
  1. NAVITOCLAX [Suspect]
     Active Substance: NAVITOCLAX
     Dosage: 200 MILLIGRAM
     Route: 048
     Dates: start: 20180720, end: 20180814
  2. PRESERVISION AREDS [Concomitant]
     Active Substance: MINERALS\VITAMINS
     Indication: MACULAR DEGENERATION
     Dosage: 1 TABLET QD
     Route: 048
     Dates: start: 20160106
  3. NAVITOCLAX [Suspect]
     Active Substance: NAVITOCLAX
     Dosage: 200 MILLIGRAM
     Route: 048
     Dates: start: 20180411, end: 20180417
  4. FLECAINIDE [Concomitant]
     Active Substance: FLECAINIDE
     Indication: MITRAL VALVE PROLAPSE
  5. NAVITOCLAX [Suspect]
     Active Substance: NAVITOCLAX
     Dosage: 100 MILLIGRAM
     Route: 048
     Dates: start: 20180404, end: 20180410
  6. PROPANOLOL [PROPRANOLOL] [Concomitant]
     Active Substance: PROPRANOLOL HYDROCHLORIDE
     Indication: TREMOR
     Dosage: 80 MILLIGRAM, BID
     Route: 048
     Dates: start: 20170215
  7. VITAMIN D3 [Concomitant]
     Active Substance: CHOLECALCIFEROL
     Indication: PROPHYLAXIS
     Dosage: 400 MILLILITER, QD
     Route: 048
     Dates: start: 20180509
  8. NAVITOCLAX [Suspect]
     Active Substance: NAVITOCLAX
     Dosage: 300 MILLIGRAM
     Route: 048
     Dates: start: 20180815, end: 20180911
  9. NAVITOCLAX [Suspect]
     Active Substance: NAVITOCLAX
     Dosage: 200 MILLIGRAM
     Route: 048
     Dates: start: 20180912
  10. OMEGA 3 FISH OIL [FISH OIL] [Concomitant]
     Indication: DRY EYE
     Dosage: 4000 MILLIGRAM, BID (2000 MG, 2 IN 1 D)
     Route: 048
     Dates: start: 20170524
  11. FLECAINIDE [Concomitant]
     Active Substance: FLECAINIDE
     Indication: ATRIAL FIBRILLATION
     Dosage: 50 MILLIGRAM, QD
     Route: 048
     Dates: start: 20140429
  12. ALLOPURINOL. [Concomitant]
     Active Substance: ALLOPURINOL
     Indication: PROPHYLAXIS
     Dosage: 100 MILLIGRAM, QD
     Route: 048
     Dates: start: 20180327
  13. VALACYCLOVIR [Concomitant]
     Active Substance: VALACYCLOVIR HYDROCHLORIDE
     Indication: ORAL HERPES
     Dosage: 2 TABLETS QD
     Route: 048
     Dates: start: 20180425
  14. VITAMINS NOS [Concomitant]
     Active Substance: VITAMINS
     Indication: PROPHYLAXIS
     Dosage: 2 CAPSULES QD
     Route: 048
     Dates: start: 20160101
  15. NAVITOCLAX [Suspect]
     Active Substance: NAVITOCLAX
     Dosage: 200 MILLIGRAM
     Route: 048
     Dates: start: 20180512, end: 20180606
  16. IPRATROPIUM [Concomitant]
     Active Substance: IPRATROPIUM
     Indication: ROUTINE HEALTH MAINTENANCE
     Dosage: 0.6 PERCENT, QD
     Route: 045
     Dates: start: 20151230
  17. NAVITOCLAX [Suspect]
     Active Substance: NAVITOCLAX
     Indication: MYELOFIBROSIS
     Dosage: 50 MILLIGRAM
     Route: 048
     Dates: start: 20180328, end: 20180403
  18. LACTOBACILLUS ACIDOPHILUS [Concomitant]
     Active Substance: LACTOBACILLUS ACIDOPHILUS
     Indication: DIARRHOEA
     Dosage: 2 TABLETS QD
     Route: 048
     Dates: start: 20191223
  19. JAKAFI [Suspect]
     Active Substance: RUXOLITINIB
     Dosage: 5 MILLIGRAM, BID
     Route: 048
     Dates: start: 20190522
  20. NAVITOCLAX [Suspect]
     Active Substance: NAVITOCLAX
     Dosage: 300 MILLIGRAM
     Route: 048
     Dates: start: 20180418, end: 20180508
  21. LEVOTHROID [Concomitant]
     Active Substance: LEVOTHYROXINE SODIUM
     Indication: HYPOTHYROIDISM
     Dosage: UNK
     Route: 065
     Dates: start: 20140616
  22. IMODIUM [Concomitant]
     Active Substance: LOPERAMIDE HYDROCHLORIDE
     Indication: DIARRHOEA
     Dosage: PRN
     Route: 065
     Dates: start: 20140616
  23. JAKAFI [Suspect]
     Active Substance: RUXOLITINIB
     Indication: MYELOFIBROSIS
     Dosage: 20 MILLIGRAM, BID
     Route: 048
     Dates: start: 20180328, end: 20180504
  24. JAKAFI [Suspect]
     Active Substance: RUXOLITINIB
     Dosage: 10 MILLIGRAM, BID
     Route: 048
     Dates: start: 20180504, end: 20190521
  25. NAVITOCLAX [Suspect]
     Active Substance: NAVITOCLAX
     Dosage: 100 MILLIGRAM
     Route: 048
     Dates: start: 20180610, end: 20180719

REACTIONS (10)
  - Hepatic cirrhosis [Not Recovered/Not Resolved]
  - Gallbladder enlargement [Unknown]
  - Pneumonia [Unknown]
  - Portal vein thrombosis [Unknown]
  - Pulmonary hypertension [Unknown]
  - Peripheral swelling [Unknown]
  - Deep vein thrombosis [Unknown]
  - Portal hypertension [Unknown]
  - Cardiac dysfunction [Unknown]
  - Wound infection [Unknown]

NARRATIVE: CASE EVENT DATE: 20191221
